FAERS Safety Report 13156139 (Version 1)
Quarter: 2017Q1

REPORT INFORMATION
  Report Type: Spontaneous
  Country: JP (occurrence: JP)
  Receive Date: 20170126
  Receipt Date: 20170126
  Transmission Date: 20170428
  Serious: Yes (Other)
  Sender: FDA-Public Use
  Company Number: JP-SYMPLMED PHARMACEUTICALS-2017SYMPLMED000410

PATIENT

DRUGS (3)
  1. BISOPROLOL [Concomitant]
     Active Substance: BISOPROLOL
     Indication: CARDIAC AMYLOIDOSIS
     Dosage: 0.312 MG, UNK
  2. COVERSYL [Suspect]
     Active Substance: PERINDOPRIL
     Indication: CARDIAC AMYLOIDOSIS
     Dosage: UNK
     Route: 048
  3. DIURETICS [Concomitant]
     Active Substance: UNSPECIFIED INGREDIENT
     Indication: CARDIAC AMYLOIDOSIS
     Dosage: UNK

REACTIONS (2)
  - Plasma cell myeloma [Unknown]
  - Orthostatic hypotension [Unknown]
